FAERS Safety Report 5981757-5 (Version None)
Quarter: 2008Q4

REPORT INFORMATION
  Report Type: 
  Country: None (occurrence: None)
  Receive Date: 20081205
  Receipt Date: 20081203
  Transmission Date: 20090506
  Serious: Yes (Hospitalization)
  Sender: FDA-Public Use
  Company Number: US-KINGPHARMUSA00001-K200801371

PATIENT
  Sex: Male

DRUGS (3)
  1. ALTACE [Suspect]
     Indication: CARDIAC FAILURE
     Dosage: 10 MG, QD
     Route: 048
     Dates: start: 20081110, end: 20081111
  2. ALTACE [Suspect]
     Dosage: 7.5 MG, QD
     Route: 048
  3. ALTACE [Suspect]
     Dosage: 5 MG, QD
     Route: 048

REACTIONS (4)
  - ASCITES [None]
  - CARDIAC FAILURE [None]
  - DYSPNOEA [None]
  - WHEEZING [None]
